FAERS Safety Report 6818421-6 (Version None)
Quarter: 2010Q3

REPORT INFORMATION
  Report Type: 
  Country: None (occurrence: None)
  Receive Date: 20100706
  Receipt Date: 20080114
  Transmission Date: 20110219
  Serious: Yes (Life-Threatening, Disabling)
  Sender: FDA-Public Use
  Company Number: US-PFIZER INC-2008004837

PATIENT
  Sex: Female

DRUGS (5)
  1. ZITHROMAX [Suspect]
     Indication: EYE INFECTION
     Dates: start: 20070105
  2. LAMICTAL [Suspect]
     Dates: start: 20061218
  3. NEOSPORIN OPHTHALMIC SOLUTION [Concomitant]
     Indication: EYE INFECTION
     Route: 047
     Dates: start: 20061229
  4. CIPROFLOXACIN [Concomitant]
     Indication: EYE INFECTION
     Route: 047
     Dates: start: 20070102
  5. DEXAMETHASONE [Concomitant]
     Indication: EYE INFECTION
     Route: 047
     Dates: start: 20070102

REACTIONS (1)
  - STEVENS-JOHNSON SYNDROME [None]
